FAERS Safety Report 4833012-4 (Version None)
Quarter: 2005Q4

REPORT INFORMATION
  Report Type: 
  Country: None (occurrence: None)
  Receive Date: 20051121
  Receipt Date: 20051109
  Transmission Date: 20060501
  Serious: Yes (Other)
  Sender: FDA-Public Use
  Company Number: US-MERCK-0511USA02860

PATIENT
  Age: 52 Year
  Sex: Male

DRUGS (1)
  1. HYDRODIURIL [Suspect]
     Route: 048

REACTIONS (2)
  - ANTI-SS-A ANTIBODY POSITIVE [None]
  - CUTANEOUS LUPUS ERYTHEMATOSUS [None]
